FAERS Safety Report 7316189-0 (Version None)
Quarter: 2011Q1

REPORT INFORMATION
  Report Type: 
  Country: None (occurrence: None)
  Receive Date: 20110225
  Receipt Date: 20110215
  Transmission Date: 20110831
  Serious: Yes (Hospitalization)
  Sender: FDA-Public Use
  Company Number: FR-PFIZER INC-2011031349

PATIENT
  Age: 35 Year
  Sex: Male

DRUGS (5)
  1. CORDARONE [Suspect]
     Indication: ATRIAL FIBRILLATION
     Dosage: 200 MG, 1X/DAY
     Route: 048
     Dates: start: 20101013, end: 20110115
  2. ACETAMINOPHEN [Concomitant]
  3. LYRICA [Suspect]
     Indication: CEREBROVASCULAR ACCIDENT PROPHYLAXIS
     Dosage: 50 MG, 2X/DAY
     Route: 048
     Dates: start: 20101013, end: 20110115
  4. PREVISCAN [Concomitant]
  5. RIVOTRIL [Suspect]
     Indication: DEPRESSION
     Dosage: 2 MG, 1X/DAY
     Route: 048
     Dates: start: 20101013, end: 20110115

REACTIONS (2)
  - MALAISE [None]
  - SINUS BRADYCARDIA [None]
